FAERS Safety Report 9056307 (Version 1)
Quarter: 2013Q1

REPORT INFORMATION
  Report Type: Spontaneous
  Country: US (occurrence: US)
  Receive Date: 20130204
  Receipt Date: 20130204
  Transmission Date: 20140127
  Serious: Yes (Disabling)
  Sender: FDA-Public Use
  Company Number: US-009507513-1209USA007851

PATIENT
  Age: 60 None
  Sex: Male
  Weight: 76.64 kg

DRUGS (7)
  1. PEGINTRON [Suspect]
     Indication: HEPATITIS C
     Dosage: 150 MICROGRAM, QW
     Route: 058
     Dates: start: 20120902
  2. BOCEPREVIR [Suspect]
     Indication: HEPATITIS C
     Dosage: 200 MG 4 BY MOUTH, Q8H
     Route: 048
     Dates: start: 20120930
  3. RIBAVIRIN [Suspect]
     Indication: HEPATITIS C
     Dosage: 200 MG, UNK
     Route: 048
     Dates: start: 20120902, end: 20121019
  4. RIBAVIRIN [Suspect]
     Dosage: UNK
     Route: 048
     Dates: start: 20121020
  5. KEPPRA XR [Concomitant]
     Indication: CONVULSION
     Dosage: 1500 MG
     Route: 048
  6. ALBUTEROL [Concomitant]
     Indication: CHRONIC OBSTRUCTIVE PULMONARY DISEASE
     Route: 055
  7. SPIRIVA [Concomitant]
     Indication: CHRONIC OBSTRUCTIVE PULMONARY DISEASE

REACTIONS (4)
  - Drug eruption [Unknown]
  - Drug dose omission [Unknown]
  - Depressed mood [Unknown]
  - No adverse event [Unknown]
